FAERS Safety Report 4692927-0 (Version None)
Quarter: 2005Q2

REPORT INFORMATION
  Report Type: 
  Country: None (occurrence: None)
  Receive Date: 20050615
  Receipt Date: 20050531
  Transmission Date: 20051028
  Serious: Yes (Hospitalization)
  Sender: FDA-Public Use
  Company Number: USA050699386

PATIENT
  Age: 47 Year
  Sex: Female

DRUGS (2)
  1. ZYPREXA [Suspect]
     Dosage: 675 MG
     Dates: start: 20050521
  2. LITHIUM [Concomitant]

REACTIONS (10)
  - AIR EMBOLISM [None]
  - ALCOHOL USE [None]
  - ANTIPSYCHOTIC DRUG LEVEL INCREASED [None]
  - CAUSTIC INJURY [None]
  - DEPRESSION [None]
  - GASTRIC DISORDER [None]
  - INTENTIONAL MISUSE [None]
  - OESOPHAGEAL INJURY [None]
  - OVERDOSE [None]
  - SUICIDE ATTEMPT [None]
